FAERS Safety Report 18412892 (Version 3)
Quarter: 2020Q4

REPORT INFORMATION
  Report Type: Spontaneous
  Country: CR (occurrence: CR)
  Receive Date: 20201022
  Receipt Date: 20201117
  Transmission Date: 20210114
  Serious: Yes (Other)
  Sender: FDA-Public Use
  Company Number: CR-PFIZER INC-2020362806

PATIENT
  Age: 59 Year
  Weight: 70 kg

DRUGS (10)
  1. METHOTREXATE SODIUM. [Suspect]
     Active Substance: METHOTREXATE SODIUM
     Dosage: 8 DF, WEEKLY (8 WEEKLY TABLETS)
     Dates: start: 2020, end: 2020
  2. METHOTREXATE SODIUM. [Suspect]
     Active Substance: METHOTREXATE SODIUM
     Dosage: 6 DF, WEEKLY (2.5 MG, 6 TIMES PER WEEK)
     Dates: start: 2020, end: 2020
  3. INDOMETACINA [INDOMETACIN] [Concomitant]
     Dosage: 4 DF, DAILY (25 MG, FOUR DAILY)
  4. TENOXICAN [Concomitant]
     Dosage: 2 DF, DAILY
  5. NEO-MELUBRINA [Concomitant]
     Dosage: 500 MG, 2X/DAY (500 MG, TWO DAILY)
  6. TENOXICAN [Concomitant]
     Dosage: 1 DF, DAILY (1 DAILY TABLET)
  7. PREDNISOLONA [PREDNISOLONE] [Concomitant]
     Active Substance: PREDNISOLONE
     Dosage: 3 DF, DAILY (25 MG, THREE DAILY)
  8. METHOTREXATE SODIUM. [Suspect]
     Active Substance: METHOTREXATE SODIUM
     Indication: RHEUMATOID ARTHRITIS
     Dosage: 3 DF, WEEKLY (3 TABLETS PER WEEK)
     Dates: start: 2008
  9. TOCILIZUMAB. [Concomitant]
     Active Substance: TOCILIZUMAB
     Dosage: 576 MG
     Route: 042
  10. TOCILIZUMAB. [Concomitant]
     Active Substance: TOCILIZUMAB
     Dosage: UNK (INJECTABLE PEN)

REACTIONS (5)
  - Tendonitis [Not Recovered/Not Resolved]
  - Arthritis [Not Recovered/Not Resolved]
  - Pain [Unknown]
  - Drug ineffective [Unknown]
  - Weight increased [Not Recovered/Not Resolved]

NARRATIVE: CASE EVENT DATE: 202005
